FAERS Safety Report 6020668-6 (Version None)
Quarter: 2008Q4

REPORT INFORMATION
  Report Type: 
  Country: None (occurrence: None)
  Receive Date: 20081222
  Receipt Date: 20081208
  Transmission Date: 20090506
  Serious: Yes (Hospitalization, Other)
  Sender: FDA-Public Use
  Company Number: A-CH2008-23047

PATIENT
  Age: 57 Year
  Sex: Female

DRUGS (6)
  1. TRACLEER [Suspect]
     Indication: PULMONARY ARTERIAL HYPERTENSION
     Dosage: ORAL
     Route: 048
     Dates: start: 20080301, end: 20080501
  2. PROSTACYCLIN (EPOPROSTENOL) [Concomitant]
  3. CORTICOSTEROIDS [Concomitant]
  4. COLCHICINE (COLCHICINE) [Concomitant]
  5. IMUREL (AZATHIOPRINE) [Concomitant]
  6. DILTIAZEM HYDROCHLORIDE [Concomitant]

REACTIONS (2)
  - OEDEMA PERIPHERAL [None]
  - PERIPHERAL MOTOR NEUROPATHY [None]
